FAERS Safety Report 9647011 (Version 2)
Quarter: 2013Q4

REPORT INFORMATION
  Report Type: Spontaneous
  Country: US (occurrence: US)
  Receive Date: 20131027
  Receipt Date: 20131027
  Transmission Date: 20140711
  Serious: No
  Sender: FDA-Public Use
  Company Number: US-PURDUE-USA-2013-0102595

PATIENT
  Sex: Female

DRUGS (3)
  1. OXYCONTIN (NDA 22-272) [Suspect]
     Indication: PRODUCT USED FOR UNKNOWN INDICATION
     Dosage: UNK MG, UNK
     Route: 048
     Dates: start: 1999, end: 200609
  2. OXYCONTIN (NDA 22-272) [Suspect]
     Dosage: 40 MG, UNK
     Route: 048
     Dates: start: 200609, end: 201101
  3. OXYCONTIN (NDA 22-272) [Suspect]
     Dosage: 20 MG, UNK
     Route: 048

REACTIONS (3)
  - Product odour abnormal [Unknown]
  - Nausea [Unknown]
  - Elevated mood [Unknown]
